FAERS Safety Report 10383709 (Version 1)
Quarter: 2014Q3

REPORT INFORMATION
  Report Type: Spontaneous
  Country: IN (occurrence: IN)
  Receive Date: 20140814
  Receipt Date: 20140814
  Transmission Date: 20150326
  Serious: Yes (Death, Hospitalization, Other)
  Sender: FDA-Public Use
  Company Number: IN-009507513-1408IND006919

PATIENT
  Age: 65 Year
  Sex: Female
  Weight: 68 kg

DRUGS (1)
  1. JANUMET [Suspect]
     Active Substance: METFORMIN HYDROCHLORIDE\SITAGLIPTIN PHOSPHATE
     Indication: DIABETES MELLITUS
     Dosage: 1 DOSE/ DAY, OD-ONCE IN A DAY
     Route: 048
     Dates: end: 20140715

REACTIONS (3)
  - Drug administration error [Unknown]
  - Blood cholesterol increased [Unknown]
  - Renal failure [Fatal]

NARRATIVE: CASE EVENT DATE: 2014
